FAERS Safety Report 8258368-4 (Version None)
Quarter: 2012Q1

REPORT INFORMATION
  Report Type: 
  Country: None (occurrence: None)
  Receive Date: 20120322
  Receipt Date: 20120126
  Transmission Date: 20120608
  Serious: Yes (Hospitalization)
  Sender: FDA-Public Use
  Company Number: UTC-015045

PATIENT
  Age: 51 Year
  Sex: Male
  Weight: 90.9 kg

DRUGS (3)
  1. REVATIO [Concomitant]
  2. TYVASO [Suspect]
     Indication: COR PULMONALE CHRONIC
     Dosage: 18 TO 54 MICROGRAM (4 IN 1 D), INHALATION
     Route: 055
     Dates: start: 20111227
  3. TRACLEER [Concomitant]

REACTIONS (2)
  - DYSPNOEA [None]
  - CHEST DISCOMFORT [None]
